FAERS Safety Report 17492439 (Version 1)
Quarter: 2020Q1

REPORT INFORMATION
  Report Type: Spontaneous
  Country: US (occurrence: US)
  Receive Date: 20200303
  Receipt Date: 20200303
  Transmission Date: 20200409
  Serious: Yes (Life-Threatening, Hospitalization, Other)
  Sender: FDA-Public Use
  Company Number: US-BAYER-2020-035400

PATIENT
  Age: 61 Year
  Sex: Female

DRUGS (1)
  1. ACETYLSALICYLIC ACID [Suspect]
     Active Substance: ASPIRIN
     Route: 048

REACTIONS (18)
  - Delirium [Recovered/Resolved]
  - Toxicity to various agents [Recovered/Resolved]
  - Nystagmus [Recovered/Resolved]
  - Tinnitus [Recovered/Resolved]
  - Malaise [Recovered/Resolved]
  - Acid-base balance disorder mixed [Recovered/Resolved]
  - Respiratory alkalosis [Recovered/Resolved]
  - Metabolic acidosis [Recovered/Resolved]
  - Anxiety [Recovered/Resolved]
  - Kussmaul respiration [Recovered/Resolved]
  - Nervous system disorder [Recovered/Resolved]
  - Hallucination [Recovered/Resolved]
  - Vision blurred [Recovered/Resolved]
  - Hemiparesis [Recovered/Resolved]
  - Dyspnoea [Recovered/Resolved]
  - Hyperreflexia [Recovered/Resolved]
  - Inappropriate affect [Recovered/Resolved]
  - Speech disorder [Recovered/Resolved]
